FAERS Safety Report 6414741-8 (Version None)
Quarter: 2009Q4

REPORT INFORMATION
  Report Type: 
  Country: None (occurrence: None)
  Receive Date: 20091026
  Receipt Date: 20091026
  Transmission Date: 20100525
  Serious: Yes (Other)
  Sender: FDA-Public Use
  Company Number: None

PATIENT
  Age: 58 Year
  Sex: Female
  Weight: 90.7194 kg

DRUGS (1)
  1. ZICAM COLD REMEDY GEL SWABS ZICAM [Suspect]
     Dosage: 1 GEL SWAB EVERY 4 HOURS NASAL
     Route: 045

REACTIONS (1)
  - PRODUCT QUALITY ISSUE [None]
